FAERS Safety Report 25721032 (Version 1)
Quarter: 2025Q3

REPORT INFORMATION
  Report Type: Spontaneous
  Country: US (occurrence: None)
  Receive Date: 20250822
  Receipt Date: 20250822
  Transmission Date: 20251020
  Serious: Yes (Disabling)
  Sender: FDA-CTU
  Company Number: None

PATIENT
  Age: 41 Year
  Sex: Female
  Weight: 76.95 kg

DRUGS (7)
  1. CRENESSITY [Suspect]
     Active Substance: CRINECERFONT
     Indication: Adrenogenital syndrome
     Dates: start: 20220922
  2. CRENESSITY [Concomitant]
     Active Substance: CRINECERFONT
  3. CORTEF [Concomitant]
     Active Substance: HYDROCORTISONE
  4. fluorinf [Concomitant]
  5. LIALDA [Concomitant]
     Active Substance: MESALAMINE
  6. VITAMIN D [Concomitant]
     Active Substance: VITAMIN D NOS
  7. GLUTAMINE [Concomitant]
     Active Substance: GLUTAMINE

REACTIONS (1)
  - Adenomyosis [None]

NARRATIVE: CASE EVENT DATE: 20250818
